FAERS Safety Report 14654996 (Version 2)
Quarter: 2018Q2

REPORT INFORMATION
  Report Type: Spontaneous
  Country: ES (occurrence: ES)
  Receive Date: 20180319
  Receipt Date: 20180416
  Transmission Date: 20180711
  Serious: Yes (Other)
  Sender: FDA-Public Use
  Company Number: ES-MYLANLABS-2018M1016209

PATIENT
  Age: 60 Year
  Sex: Female

DRUGS (5)
  1. LETROZOLE. [Suspect]
     Active Substance: LETROZOLE
     Indication: HER-2 POSITIVE BREAST CANCER
     Dosage: 600 MG, 3XW 12 CYCLES
     Route: 058
     Dates: start: 20170217, end: 20171006
  2. EPIRUBICINE [Concomitant]
     Active Substance: EPIRUBICIN
     Indication: PRODUCT USED FOR UNKNOWN INDICATION
     Dosage: UNK (EPIRRUBICINE X 4)
  3. PACLITAXEL. [Concomitant]
     Active Substance: PACLITAXEL
     Indication: PRODUCT USED FOR UNKNOWN INDICATION
     Dosage: 1 DF, QW
  4. CYCLOPHOSPHAMIDE. [Concomitant]
     Active Substance: CYCLOPHOSPHAMIDE
     Indication: PRODUCT USED FOR UNKNOWN INDICATION
     Dosage: UNK (CYCLOPHOSPHOMIDE X 4
  5. HERCEPTIN [Suspect]
     Active Substance: TRASTUZUMAB
     Indication: HER-2 POSITIVE BREAST CANCER
     Dosage: 600 MG, 3XW 12 CYCLES
     Route: 058
     Dates: start: 20170217, end: 20171006

REACTIONS (2)
  - Anxiety [Unknown]
  - Ejection fraction decreased [Recovered/Resolved]

NARRATIVE: CASE EVENT DATE: 20171001
